FAERS Safety Report 25691850 (Version 2)
Quarter: 2025Q4

REPORT INFORMATION
  Report Type: Spontaneous
  Country: SA (occurrence: SA)
  Receive Date: 20250818
  Receipt Date: 20251104
  Transmission Date: 20260118
  Serious: Yes (Other)
  Sender: NOVARTIS
  Company Number: SA-002147023-NVSC2025SA127222

PATIENT
  Age: 41 Year
  Sex: Female

DRUGS (3)
  1. SECUKINUMAB [Suspect]
     Active Substance: SECUKINUMAB
     Indication: Psoriatic arthropathy
     Dosage: 300 MG, QW FOR 4 WEEKS
     Route: 065
  2. SECUKINUMAB [Suspect]
     Active Substance: SECUKINUMAB
     Dosage: 300 MG, QMO
     Route: 065
  3. AZATHIOPRINE [Concomitant]
     Active Substance: AZATHIOPRINE
     Indication: Multiple sclerosis
     Dosage: 200 MG, QD
     Route: 065

REACTIONS (6)
  - Palmoplantar pustulosis [Recovering/Resolving]
  - Pustular psoriasis [Recovering/Resolving]
  - Skin exfoliation [Unknown]
  - Skin plaque [Unknown]
  - Pain [Unknown]
  - Drug eruption [Unknown]
